FAERS Safety Report 6321765-8 (Version None)
Quarter: 2009Q3

REPORT INFORMATION
  Report Type: 
  Country: None (occurrence: None)
  Receive Date: 20090824
  Receipt Date: 20071121
  Transmission Date: 20100115
  Serious: Yes (Other)
  Sender: FDA-Public Use
  Company Number: US-ASTRAZENECA-2006UW27754

PATIENT
  Age: 15787 Day
  Sex: Male
  Weight: 96.2 kg

DRUGS (10)
  1. SEROQUEL [Suspect]
     Indication: BIPOLAR DISORDER
     Route: 048
     Dates: start: 19970112, end: 20060301
  2. SEROQUEL [Suspect]
     Dosage: 50-400 MG
     Route: 048
     Dates: start: 20030106
  3. ZESTRIL [Concomitant]
     Route: 048
     Dates: start: 19990219
  4. ZYPREXA [Concomitant]
     Route: 048
     Dates: start: 19990521
  5. DEPAKOTE ER [Concomitant]
     Dosage: 900-1500 MG
     Route: 048
     Dates: start: 19990521
  6. ZOLOFT [Concomitant]
     Route: 048
     Dates: start: 19990521
  7. CELEBREX [Concomitant]
     Indication: PAIN
     Dosage: 200-400 MG
     Route: 048
     Dates: start: 20000811
  8. ALBUTEROL [Concomitant]
     Indication: CHRONIC OBSTRUCTIVE PULMONARY DISEASE
     Dosage: 2 PUFFS QID
     Dates: start: 20050410
  9. TRAZODONE HCL [Concomitant]
     Dosage: 150-450 MG
     Route: 048
     Dates: start: 20000222
  10. WELLBUTRIN SR [Concomitant]
     Dosage: 100-300 MG
     Route: 048
     Dates: start: 20030108

REACTIONS (5)
  - DIABETES MELLITUS [None]
  - DIABETES MELLITUS INADEQUATE CONTROL [None]
  - INSULIN-REQUIRING TYPE 2 DIABETES MELLITUS [None]
  - MICROALBUMINURIA [None]
  - TYPE 2 DIABETES MELLITUS [None]
